FAERS Safety Report 5097871-5 (Version None)
Quarter: 2006Q3

REPORT INFORMATION
  Report Type: 
  Country: None (occurrence: None)
  Receive Date: 20060905
  Receipt Date: 20060822
  Transmission Date: 20061208
  Serious: Yes (Other)
  Sender: FDA-Public Use
  Company Number: 112258ISR

PATIENT
  Age: 71 Year
  Sex: Female

DRUGS (3)
  1. MELOXICAM [Suspect]
     Indication: ARTHRALGIA
     Dosage: 15 MILLIGRAMS ORAL
     Route: 048
  2. LANSOPRAZOLE [Suspect]
     Indication: HIATUS HERNIA
     Dates: start: 19970101, end: 20051201
  3. LOFEPRAMINE HYDROCHLORIDE [Concomitant]

REACTIONS (1)
  - SYSTEMIC LUPUS ERYTHEMATOSUS [None]
